FAERS Safety Report 14690858 (Version 1)
Quarter: 2018Q1

REPORT INFORMATION
  Report Type: Spontaneous
  Country: DK (occurrence: DK)
  Receive Date: 20180328
  Receipt Date: 20180328
  Transmission Date: 20180509
  Serious: Yes (Other)
  Sender: FDA-Public Use
  Company Number: DK-BAUSCH-BL-2018-007454

PATIENT
  Sex: Female

DRUGS (2)
  1. VIBRADOX [Concomitant]
     Active Substance: DOXYCYCLINE
     Indication: PRODUCT USED FOR UNKNOWN INDICATION
  2. ELIDEL [Suspect]
     Active Substance: PIMECROLIMUS
     Indication: DERMATITIS
     Dosage: 2 APPLICATIONS PER DAY
     Route: 061

REACTIONS (8)
  - Product supply issue [Unknown]
  - Drug dependence [Unknown]
  - Erythema [Unknown]
  - Condition aggravated [Unknown]
  - Drug administration error [Unknown]
  - Pruritus [Unknown]
  - Rash [Unknown]
  - Swelling [Unknown]
